FAERS Safety Report 14140556 (Version 1)
Quarter: 2017Q4

REPORT INFORMATION
  Report Type: Spontaneous
  Country: US (occurrence: US)
  Receive Date: 20171030
  Receipt Date: 20171030
  Transmission Date: 20180321
  Serious: No
  Sender: FDA-Public Use
  Company Number: US-PFIZER INC-2017463102

PATIENT
  Sex: Female
  Weight: 63.5 kg

DRUGS (3)
  1. PREDNISONE. [Suspect]
     Active Substance: PREDNISONE
     Indication: RHEUMATOID ARTHRITIS
     Dosage: SHE WAS TAKING 5MG
     Dates: start: 2010
  2. IBUPROFEN. [Suspect]
     Active Substance: IBUPROFEN
     Indication: PAIN
     Dosage: 800 MG, AS NEEDED
     Route: 048
     Dates: start: 2010
  3. PREDNISONE. [Suspect]
     Active Substance: PREDNISONE
     Dosage: SHE IS TAKING AT LEAST 15MG DAILY

REACTIONS (1)
  - Drug ineffective [Unknown]
